FAERS Safety Report 5822876-3 (Version None)
Quarter: 2008Q3

REPORT INFORMATION
  Report Type: 
  Country: None (occurrence: None)
  Receive Date: 20080725
  Receipt Date: 20080717
  Transmission Date: 20090109
  Serious: Yes (Other)
  Sender: FDA-Public Use
  Company Number: US-ASTRAZENECA-2008UW14401

PATIENT
  Age: 21 Year
  Sex: Male

DRUGS (3)
  1. ENTOCORT EC [Suspect]
     Indication: CROHN'S DISEASE
     Route: 048
     Dates: start: 20080601
  2. SPORANOX [Suspect]
     Indication: HISTOPLASMOSIS
     Dates: start: 20080601
  3. MERCAPTOPURINE [Concomitant]

REACTIONS (2)
  - ADRENAL INSUFFICIENCY [None]
  - CUSHINGOID [None]
